FAERS Safety Report 9024301 (Version 1)
Quarter: 2013Q1

REPORT INFORMATION
  Report Type: Spontaneous
  Country: US (occurrence: US)
  Receive Date: 20130121
  Receipt Date: 20130121
  Transmission Date: 20140127
  Serious: Yes (Other)
  Sender: FDA-Public Use
  Company Number: PHEH2013US001598

PATIENT
  Age: 66 None
  Sex: Female

DRUGS (2)
  1. AFINITOR [Suspect]
     Indication: BREAST CANCER METASTATIC
     Dosage: 10 MG, UNK
     Route: 048
     Dates: start: 20120531
  2. EXEMESTANE [Concomitant]
     Dosage: 25 MG, UNK

REACTIONS (7)
  - Hallucination [Recovered/Resolved]
  - Central nervous system lesion [Recovering/Resolving]
  - Wrist fracture [Recovering/Resolving]
  - Malaise [Recovering/Resolving]
  - Feeling abnormal [Recovering/Resolving]
  - Hypoaesthesia [Recovering/Resolving]
  - Dizziness [Unknown]
